FAERS Safety Report 16736629 (Version 1)
Quarter: 2019Q3

REPORT INFORMATION
  Report Type: Spontaneous
  Country: US (occurrence: US)
  Receive Date: 20190823
  Receipt Date: 20190823
  Transmission Date: 20191005
  Serious: Yes (Hospitalization, Other)
  Sender: FDA-Public Use
  Company Number: US-PENTEC HEALTH-2019PEN00045

PATIENT
  Age: 3 Year
  Sex: Female
  Weight: 13.5 kg

DRUGS (3)
  1. DIHYDROCODEINE [Suspect]
     Active Substance: DIHYDROCODEINE
     Dosage: UNKNOWN AMOUNT
     Route: 048
  2. HYDROCODONE [Suspect]
     Active Substance: HYDROCODONE
     Dosage: UKNOWN AMOUNT
     Route: 048
  3. HYDROMORPHONE [Suspect]
     Active Substance: HYDROMORPHONE
     Dosage: UNKNOWN AMOUNT
     Route: 048

REACTIONS (3)
  - Motor developmental delay [Not Recovered/Not Resolved]
  - Brain oedema [Recovered/Resolved with Sequelae]
  - Accidental overdose [Recovered/Resolved]
